FAERS Safety Report 9796687 (Version 1)
Quarter: 2014Q1

REPORT INFORMATION
  Report Type: Spontaneous
  Country: FR (occurrence: FR)
  Receive Date: 20140103
  Receipt Date: 20140103
  Transmission Date: 20141002
  Serious: Yes (Hospitalization)
  Sender: FDA-Public Use
  Company Number: FR-ALLERGAN-1320209US

PATIENT
  Age: 75 Year
  Sex: Male

DRUGS (11)
  1. BOTOX [Suspect]
     Indication: MUSCLE SPASTICITY
     Dosage: 200 UNITS, SINGLE
     Dates: start: 20110830, end: 20110830
  2. BOTOX [Suspect]
     Dosage: 250 UNITS, UNK
     Dates: start: 20110524, end: 20110524
  3. BOTOX [Suspect]
     Dosage: 300 UNITS, UNK
     Dates: start: 20110222, end: 20110222
  4. BOTOX [Suspect]
     Dosage: 300 UNITS, UNK
     Dates: start: 20101130, end: 20101130
  5. LIORESAL [Concomitant]
     Dosage: 10 MG, UNK
  6. INEXUM [Concomitant]
  7. LEVEMIR [Concomitant]
  8. COVERSYL [Concomitant]
  9. SEROPLEX [Concomitant]
  10. TRANXENE [Concomitant]
  11. FLUDEX [Concomitant]

REACTIONS (3)
  - Pneumonia aspiration [Unknown]
  - Septic shock [Unknown]
  - Respiratory distress [Unknown]
